FAERS Safety Report 22132136 (Version 4)
Quarter: 2023Q2

REPORT INFORMATION
  Report Type: Report from Study
  Country: JP (occurrence: JP)
  Receive Date: 20230323
  Receipt Date: 20230426
  Transmission Date: 20230721
  Serious: Yes (Hospitalization, Other)
  Sender: FDA-Public Use
  Company Number: JP-FERRING-2023FE01332

PATIENT

DRUGS (11)
  1. DEGARELIX [Suspect]
     Active Substance: DEGARELIX
     Indication: Hormone-dependent prostate cancer
     Dosage: 80 MG, 1 TIME DAILY
     Route: 048
     Dates: start: 20230222
  2. DEGARELIX [Suspect]
     Active Substance: DEGARELIX
     Dosage: 240 MG, MONTHLY
     Route: 058
     Dates: start: 20230125
  3. ENZALUTAMIDE [Suspect]
     Active Substance: ENZALUTAMIDE
     Indication: Hormone-dependent prostate cancer
     Dosage: 80 MG, DAILY
     Route: 048
     Dates: start: 20230223, end: 20230228
  4. ENZALUTAMIDE [Suspect]
     Active Substance: ENZALUTAMIDE
     Dosage: 160 MG, 1 TIME DAILY
     Route: 048
     Dates: start: 20230125, end: 20230125
  5. IOPAMIDOL [Concomitant]
     Active Substance: IOPAMIDOL
     Dosage: UNK
     Route: 065
     Dates: start: 20230222, end: 20230222
  6. PITAVASTATIN CALCIUM [Concomitant]
     Active Substance: PITAVASTATIN CALCIUM
     Dosage: UNK
     Route: 065
     Dates: start: 20210517
  7. CLOPIDOGREL BISULFATE [Concomitant]
     Active Substance: CLOPIDOGREL BISULFATE
     Dosage: UNK
     Route: 065
     Dates: start: 20210517, end: 20230301
  8. LEVOFLOXACIN HEMIHYDRATE [Concomitant]
     Active Substance: LEVOFLOXACIN
     Dosage: UNK
     Route: 065
     Dates: start: 20230222, end: 20230228
  9. RIKKUNSHITO [ATRACTYLODES LANCEA RHIZOME;CITRUS AURANTIUM PEEL;GLYCYRR [Concomitant]
     Indication: Chronic gastritis
     Dosage: UNK
     Route: 065
     Dates: start: 20221206
  10. VONOPRAZAN FUMARATE [Concomitant]
     Active Substance: VONOPRAZAN FUMARATE
     Indication: Gastrooesophageal reflux disease
     Dosage: UNK
     Route: 065
     Dates: start: 20221206, end: 20230302
  11. ECABET MONOSODIUM [Concomitant]
     Dosage: UNK
     Route: 065
     Dates: start: 20221102, end: 20230307

REACTIONS (4)
  - Pneumonitis [Recovered/Resolved]
  - Diarrhoea [Recovered/Resolved]
  - Inappropriate schedule of product administration [Unknown]
  - Product use issue [Unknown]

NARRATIVE: CASE EVENT DATE: 20230222
